FAERS Safety Report 10255047 (Version 1)
Quarter: 2014Q2

REPORT INFORMATION
  Report Type: Spontaneous
  Country: FR (occurrence: FR)
  Receive Date: 20140624
  Receipt Date: 20140624
  Transmission Date: 20141212
  Serious: Yes (Hospitalization, Disabling)
  Sender: FDA-Public Use
  Company Number: FR-ASTRAZENECA-2014SE45602

PATIENT
  Age: 35 Year
  Sex: Female

DRUGS (15)
  1. ENTOCORT [Suspect]
     Route: 048
     Dates: start: 2014, end: 201404
  2. CORTANCYL [Suspect]
     Route: 048
     Dates: start: 201311
  3. CORTANCYL [Suspect]
     Route: 048
     Dates: start: 20140307
  4. CORTANCYL [Suspect]
     Route: 048
     Dates: start: 20140319
  5. NEORAL [Suspect]
     Indication: PROPHYLAXIS
     Route: 048
     Dates: start: 201311, end: 201404
  6. RAPAMUNE [Suspect]
     Route: 048
     Dates: start: 20140211, end: 201404
  7. OXACILLINE BASE [Concomitant]
  8. BACTRIM FORTE [Concomitant]
  9. ZELITREX [Concomitant]
  10. NOXAFIL [Concomitant]
  11. FOLINORAL [Concomitant]
  12. MAG 2 [Concomitant]
  13. DIFFU K [Concomitant]
  14. MOTILIUM [Concomitant]
  15. CALCIT VITAMIN D3 [Concomitant]

REACTIONS (2)
  - Myopathy [Recovering/Resolving]
  - Polyneuropathy [Unknown]
